FAERS Safety Report 22016690 (Version 1)
Quarter: 2023Q1

REPORT INFORMATION
  Report Type: Spontaneous
  Country: US (occurrence: None)
  Receive Date: 20230217
  Receipt Date: 20230217
  Transmission Date: 20230417
  Serious: Yes (Hospitalization)
  Sender: FDA-Public Use
  Company Number: None

PATIENT
  Sex: Female
  Weight: 56.25 kg

DRUGS (18)
  1. CAPECITABINE [Suspect]
     Active Substance: CAPECITABINE
     Indication: Colon cancer
     Dosage: OTHER QUANTITY : 500MG-1000MG;?OTHER FREQUENCY : AM/PM;?
     Dates: start: 202201
  2. ALBUTEROL [Concomitant]
     Active Substance: ALBUTEROL
  3. ASPIRIN [Concomitant]
     Active Substance: ASPIRIN
  4. BREO ELLIPTA [Concomitant]
     Active Substance: FLUTICASONE FUROATE\VILANTEROL TRIFENATATE
  5. FLONASE ALLERGY RELIEF [Concomitant]
     Active Substance: FLUTICASONE PROPIONATE
  6. INCRUSE ELLIPTA [Concomitant]
     Active Substance: UMECLIDINIUM BROMIDE
  7. ISOSORBIDE MONONITRATE [Concomitant]
     Active Substance: ISOSORBIDE MONONITRATE
  8. LACTOBACILLUS ACIDOPHILUS [Concomitant]
     Active Substance: LACTOBACILLUS ACIDOPHILUS
  9. LOMOTIL [Concomitant]
     Active Substance: ATROPINE SULFATE\DIPHENOXYLATE HYDROCHLORIDE
  10. LOVASTATIN [Concomitant]
     Active Substance: LOVASTATIN
  11. METOPROLOL [Concomitant]
     Active Substance: METOPROLOL
  12. MONUROL [Concomitant]
     Active Substance: FOSFOMYCIN TROMETHAMINE
  13. VITAMINS [Concomitant]
     Active Substance: VITAMINS
  14. NITROSTAT [Concomitant]
     Active Substance: NITROGLYCERIN
  15. OMEPRAZOLE [Concomitant]
     Active Substance: OMEPRAZOLE
  16. PREDNISONE [Concomitant]
     Active Substance: PREDNISONE
  17. TRAMADOL [Concomitant]
     Active Substance: TRAMADOL
  18. TYLENOL [Concomitant]
     Active Substance: ACETAMINOPHEN

REACTIONS (1)
  - Pneumonia [None]
